FAERS Safety Report 18564567 (Version 89)
Quarter: 2025Q4

REPORT INFORMATION
  Report Type: Report from Study
  Country: US (occurrence: US)
  Receive Date: 20201201
  Receipt Date: 20251210
  Transmission Date: 20260118
  Serious: Yes (Life-Threatening, Hospitalization, Other)
  Sender: TAKEDA
  Company Number: US-SHIRE-US202000158

PATIENT
  Age: 61 Year
  Sex: Female

DRUGS (9)
  1. HUMAN IMMUNOGLOBULIN G [Suspect]
     Active Substance: HUMAN IMMUNOGLOBULIN G
     Indication: Immunodeficiency common variable
     Dosage: UNK UNK, Q2WEEKS
  2. HUMAN IMMUNOGLOBULIN G [Suspect]
     Active Substance: HUMAN IMMUNOGLOBULIN G
     Indication: Primary immunodeficiency syndrome
     Dosage: UNK UNK, 2/MONTH
  3. HUMAN IMMUNOGLOBULIN G [Suspect]
     Active Substance: HUMAN IMMUNOGLOBULIN G
     Dosage: UNK UNK, MONTHLY
  4. HUMAN IMMUNOGLOBULIN G [Suspect]
     Active Substance: HUMAN IMMUNOGLOBULIN G
     Dosage: UNK UNK, MONTHLY
  5. HUMAN IMMUNOGLOBULIN G [Suspect]
     Active Substance: HUMAN IMMUNOGLOBULIN G
     Dosage: UNK
  6. HUMAN IMMUNOGLOBULIN G [Suspect]
     Active Substance: HUMAN IMMUNOGLOBULIN G
     Dosage: 75 GRAM, MONTHLY
  7. COVID-19 VACCINE NOS [Suspect]
     Active Substance: COVID-19 VACCINE
     Indication: COVID-19 immunisation
     Dosage: UNK
  8. LEVAQUIN [Suspect]
     Active Substance: LEVOFLOXACIN
     Indication: Product used for unknown indication
     Dosage: UNK
  9. QVAR [Suspect]
     Active Substance: BECLOMETHASONE DIPROPIONATE
     Indication: Chronic obstructive pulmonary disease
     Dosage: UNK

REACTIONS (115)
  - Clostridium difficile infection [Unknown]
  - Fluid retention [Unknown]
  - Joint swelling [Unknown]
  - Gastrointestinal bacterial infection [Unknown]
  - Gait inability [Unknown]
  - Arthritis infective [Unknown]
  - Fracture malunion [Unknown]
  - Heart rate abnormal [Unknown]
  - Asthenia [Unknown]
  - Cold sweat [Unknown]
  - Muscle spasms [Unknown]
  - Rash [Unknown]
  - Staphylococcal infection [Unknown]
  - Septic arthritis staphylococcal [Unknown]
  - Endocarditis staphylococcal [Unknown]
  - Fall [Unknown]
  - COVID-19 [Recovering/Resolving]
  - Pneumonia pseudomonal [Recovering/Resolving]
  - Escherichia infection [Recovered/Resolved]
  - Kidney infection [Recovered/Resolved]
  - Pneumonia [Recovering/Resolving]
  - Allergic cough [Not Recovered/Not Resolved]
  - Bronchitis [Unknown]
  - Deafness [Unknown]
  - Foot fracture [Recovering/Resolving]
  - Vascular device infection [Unknown]
  - Respiratory tract congestion [Unknown]
  - Parasitic pneumonia [Unknown]
  - Glaucoma [Unknown]
  - Sepsis [Unknown]
  - Cushing^s syndrome [Unknown]
  - Pulmonary congestion [Unknown]
  - Norovirus infection [Recovered/Resolved]
  - Chronic obstructive pulmonary disease [Unknown]
  - Sinusitis [Unknown]
  - Influenza [Not Recovered/Not Resolved]
  - Asthma [Unknown]
  - Insomnia [Unknown]
  - Diarrhoea [Unknown]
  - Headache [Unknown]
  - Pharyngitis streptococcal [Unknown]
  - Liver function test decreased [Unknown]
  - Neuralgia [Unknown]
  - Sleep disorder [Unknown]
  - Nasal ulcer [Unknown]
  - Poor quality sleep [Unknown]
  - Osteoarthritis [Unknown]
  - Heart valve incompetence [Unknown]
  - Oral candidiasis [Unknown]
  - Wheezing [Unknown]
  - Vomiting [Unknown]
  - Joint injury [Unknown]
  - Incision site pain [Unknown]
  - Panic attack [Unknown]
  - Ulcer [Unknown]
  - Tooth disorder [Unknown]
  - Bone disorder [Unknown]
  - Ligament disorder [Unknown]
  - Post procedural infection [Unknown]
  - Nasopharyngitis [Not Recovered/Not Resolved]
  - Rotator cuff syndrome [Unknown]
  - Medial tibial stress syndrome [Unknown]
  - Dysphagia [Unknown]
  - Hiatus hernia [Unknown]
  - Gastrooesophageal reflux disease [Unknown]
  - Candida infection [Unknown]
  - Infection [Recovering/Resolving]
  - Immunoglobulins decreased [Unknown]
  - Renal pain [Not Recovered/Not Resolved]
  - Aphonia [Unknown]
  - Laryngeal dyskinesia [Unknown]
  - Road traffic accident [Unknown]
  - Gastroenteritis viral [Unknown]
  - Dermatitis contact [Unknown]
  - Urinary tract infection [Unknown]
  - Respiratory syncytial virus infection [Recovering/Resolving]
  - Drug hypersensitivity [Unknown]
  - Blood pressure abnormal [Unknown]
  - Menopause [Unknown]
  - Tendon rupture [Unknown]
  - Oral infection [Unknown]
  - Respiratory tract infection [Not Recovered/Not Resolved]
  - Bone pain [Unknown]
  - Bone contusion [Unknown]
  - Breast pain [Unknown]
  - Breast discharge [Unknown]
  - Affective disorder [Unknown]
  - Crying [Unknown]
  - Flatulence [Unknown]
  - Irritable bowel syndrome [Unknown]
  - Gastrointestinal wall thickening [Unknown]
  - Upper respiratory tract congestion [Unknown]
  - Sinus congestion [Unknown]
  - Swelling face [Unknown]
  - Laryngospasm [Unknown]
  - Upper respiratory tract infection [Unknown]
  - Abdominal discomfort [Unknown]
  - Contusion [Unknown]
  - Oropharyngeal pain [Unknown]
  - Pain [Unknown]
  - Blood pressure increased [Unknown]
  - Influenza like illness [Unknown]
  - Pain in extremity [Unknown]
  - Cough [Not Recovered/Not Resolved]
  - Malaise [Unknown]
  - Dyspnoea [Unknown]
  - Arthralgia [Unknown]
  - Chills [Unknown]
  - Pyrexia [Unknown]
  - Fatigue [Unknown]
  - Head injury [Unknown]
  - Concussion [Unknown]
  - Eye disorder [Unknown]
  - Tinnitus [Unknown]
  - Memory impairment [Unknown]

NARRATIVE: CASE EVENT DATE: 20210901
